FAERS Safety Report 9347259 (Version 1)
Quarter: 2013Q2

REPORT INFORMATION
  Report Type: Spontaneous
  Country: US (occurrence: US)
  Receive Date: 20130613
  Receipt Date: 20130613
  Transmission Date: 20140414
  Serious: Yes (Other)
  Sender: FDA-Public Use
  Company Number: US-ABBOTT-13P-163-1101420-00

PATIENT
  Sex: Female
  Weight: 59.02 kg

DRUGS (32)
  1. HUMIRA [Suspect]
     Indication: CROHN^S DISEASE
     Route: 058
     Dates: start: 200912
  2. PREDNISONE [Concomitant]
     Indication: PRODUCT USED FOR UNKNOWN INDICATION
  3. NEXIUM [Concomitant]
     Indication: PRODUCT USED FOR UNKNOWN INDICATION
  4. K PHOS NEUTRAL [Concomitant]
     Indication: PRODUCT USED FOR UNKNOWN INDICATION
  5. FLAGYL [Concomitant]
     Indication: PRODUCT USED FOR UNKNOWN INDICATION
  6. PANCREASE [Concomitant]
     Indication: PRODUCT USED FOR UNKNOWN INDICATION
  7. PENTAST [Concomitant]
     Indication: PRODUCT USED FOR UNKNOWN INDICATION
  8. XIFAXAN [Concomitant]
     Indication: PRODUCT USED FOR UNKNOWN INDICATION
  9. GENOTROPIN [Concomitant]
     Indication: PRODUCT USED FOR UNKNOWN INDICATION
  10. UROCIT-K [Concomitant]
     Indication: PRODUCT USED FOR UNKNOWN INDICATION
  11. DITROPAN [Concomitant]
     Indication: PRODUCT USED FOR UNKNOWN INDICATION
  12. DETROL [Concomitant]
     Indication: PRODUCT USED FOR UNKNOWN INDICATION
  13. AMOXIL [Concomitant]
     Indication: PRODUCT USED FOR UNKNOWN INDICATION
  14. CELEBREX [Concomitant]
     Indication: PRODUCT USED FOR UNKNOWN INDICATION
  15. DEPO PROVERA [Concomitant]
     Indication: PRODUCT USED FOR UNKNOWN INDICATION
  16. DIAMAX [Concomitant]
     Indication: PRODUCT USED FOR UNKNOWN INDICATION
  17. TOPAMAX [Concomitant]
     Indication: PRODUCT USED FOR UNKNOWN INDICATION
  18. LASIX [Concomitant]
     Indication: PRODUCT USED FOR UNKNOWN INDICATION
  19. HYDROCHLOORTHIAZIDE [Concomitant]
     Indication: PRODUCT USED FOR UNKNOWN INDICATION
  20. K-DUR [Concomitant]
     Indication: PRODUCT USED FOR UNKNOWN INDICATION
  21. MEW [Concomitant]
     Indication: PRODUCT USED FOR UNKNOWN INDICATION
  22. DEXEDRINE [Concomitant]
     Indication: PRODUCT USED FOR UNKNOWN INDICATION
  23. ATENOLOL [Concomitant]
     Indication: PRODUCT USED FOR UNKNOWN INDICATION
  24. SINGULAR [Concomitant]
     Indication: PRODUCT USED FOR UNKNOWN INDICATION
  25. ALEGRA [Concomitant]
     Indication: PRODUCT USED FOR UNKNOWN INDICATION
  26. BROVEX PSE [Concomitant]
     Indication: PRODUCT USED FOR UNKNOWN INDICATION
  27. MUCINEX D [Concomitant]
     Indication: PRODUCT USED FOR UNKNOWN INDICATION
  28. SYMBICORT [Concomitant]
     Indication: PRODUCT USED FOR UNKNOWN INDICATION
  29. RHINOCORT [Concomitant]
     Indication: PRODUCT USED FOR UNKNOWN INDICATION
  30. ATROVENT [Concomitant]
     Indication: PRODUCT USED FOR UNKNOWN INDICATION
  31. LOMOTIL [Concomitant]
     Indication: PRODUCT USED FOR UNKNOWN INDICATION
  32. KITRAL [Concomitant]
     Indication: PRODUCT USED FOR UNKNOWN INDICATION

REACTIONS (1)
  - Hepatic cyst [Not Recovered/Not Resolved]
